FAERS Safety Report 4496830-0 (Version None)
Quarter: 2004Q4

REPORT INFORMATION
  Report Type: 
  Country: None (occurrence: None)
  Receive Date: 20041109
  Receipt Date: 20041007
  Transmission Date: 20050328
  Serious: Yes (Hospitalization, Other)
  Sender: FDA-Public Use
  Company Number: US-GLAXOSMITHKLINE-A0529029A

PATIENT
  Age: 56 Year
  Sex: Male

DRUGS (3)
  1. LAMICTAL [Suspect]
     Indication: BIPOLAR DISORDER
     Route: 048
  2. PARNATE [Suspect]
  3. LITHIUM [Concomitant]

REACTIONS (6)
  - ATAXIA [None]
  - BLINDNESS [None]
  - CONFUSIONAL STATE [None]
  - DIPLOPIA [None]
  - DRUG INTERACTION [None]
  - NEUROTOXICITY [None]
